FAERS Safety Report 13423934 (Version 1)
Quarter: 2017Q2

REPORT INFORMATION
  Report Type: Spontaneous
  Country: US (occurrence: US)
  Receive Date: 20170410
  Receipt Date: 20170410
  Transmission Date: 20170830
  Serious: No
  Sender: FDA-Public Use
  Company Number: US-BAYER-2017-067902

PATIENT
  Sex: Female

DRUGS (1)
  1. BILTRICIDE [Suspect]
     Active Substance: PRAZIQUANTEL
     Indication: FASCIOLIASIS
     Dosage: UNK
     Dates: start: 201606

REACTIONS (2)
  - Pain [None]
  - Malaise [None]
